FAERS Safety Report 9022045 (Version 3)
Quarter: 2016Q3

REPORT INFORMATION
  Report Type: Spontaneous
  Country: FR (occurrence: FR)
  Receive Date: 20130118
  Receipt Date: 20160803
  Transmission Date: 20161109
  Serious: Yes (Hospitalization, Other)
  Sender: FDA-Public Use
  Company Number: FR-PFIZER INC-2013001928

PATIENT
  Age: 39 Year
  Sex: Female

DRUGS (6)
  1. IXPRIM [Concomitant]
     Active Substance: ACETAMINOPHEN\TRAMADOL HYDROCHLORIDE
  2. LYRICA [Suspect]
     Active Substance: PREGABALIN
     Dosage: 500 MG, 1X/DAY
     Dates: end: 2012
  3. XANAX [Concomitant]
     Active Substance: ALPRAZOLAM
     Dosage: 0.5 MG, 3X/DAY
  4. TRAMADOL HYDROCHLORIDE. [Concomitant]
     Active Substance: TRAMADOL HYDROCHLORIDE
     Dosage: 200 MG, 1X/DAY
     Dates: start: 201203
  5. CYMBALTA [Suspect]
     Active Substance: DULOXETINE HYDROCHLORIDE
     Dosage: 60 MG, 1X/DAY
     Route: 048
     Dates: end: 2012
  6. VOLTARENE [Concomitant]
     Active Substance: DICLOFENAC SODIUM

REACTIONS (7)
  - Sinus tachycardia [Recovered/Resolved]
  - Ventricular hypokinesia [Unknown]
  - Cardiomegaly [Unknown]
  - Dyspnoea [Recovered/Resolved]
  - Night sweats [Recovered/Resolved]
  - Chest pain [Unknown]
  - Asthenia [Recovered/Resolved]

NARRATIVE: CASE EVENT DATE: 201209
